FAERS Safety Report 6640451-8 (Version None)
Quarter: 2010Q1

REPORT INFORMATION
  Report Type: 
  Country: None (occurrence: None)
  Receive Date: 20100318
  Receipt Date: 20100308
  Transmission Date: 20100710
  Serious: Yes (Death, Other)
  Sender: FDA-Public Use
  Company Number: JP-PFIZER INC-2009202207

PATIENT
  Age: 60 Year
  Sex: Male
  Weight: 45 kg

DRUGS (5)
  1. SUNITINIB MALATE [Suspect]
     Indication: GASTROINTESTINAL STROMAL TUMOUR
     Dosage: 50 MG, 1X/DAY
     Route: 048
     Dates: start: 20080828
  2. PRIMPERAN INJ [Concomitant]
     Dosage: UNK
     Route: 042
     Dates: start: 20080901, end: 20080901
  3. FAMOTIDINE [Concomitant]
     Dosage: UNK
     Route: 048
  4. CRAVIT [Concomitant]
     Dates: start: 20080924, end: 20080926
  5. LOXONIN [Concomitant]
     Route: 048
     Dates: start: 20080924, end: 20080926

REACTIONS (2)
  - ABSCESS ORAL [None]
  - DEATH [None]
